FAERS Safety Report 10496454 (Version 3)
Quarter: 2014Q4

REPORT INFORMATION
  Report Type: Spontaneous
  Country: US (occurrence: US)
  Receive Date: 20141004
  Receipt Date: 20141008
  Transmission Date: 20150528
  Serious: Yes (Other)
  Sender: FDA-Public Use
  Company Number: US-AUROBINDO-AUR-APL-2014-08266

PATIENT
  Sex: Female
  Weight: 68 kg

DRUGS (16)
  1. OMEPRAZOLE. [Suspect]
     Active Substance: OMEPRAZOLE
     Dosage: 20 MG, TWO TIMES A DAY
     Route: 048
  2. NEXIUM [Suspect]
     Active Substance: ESOMEPRAZOLE MAGNESIUM
     Indication: HIATUS HERNIA
     Dosage: 40 MG, DAILY
     Route: 048
     Dates: start: 1998
  3. TOPROL XL [Suspect]
     Active Substance: METOPROLOL SUCCINATE
     Indication: BLOOD PRESSURE
     Dosage: 50 MG, DAILY
     Route: 048
     Dates: start: 2010, end: 201311
  4. TOPROL XL [Suspect]
     Active Substance: METOPROLOL SUCCINATE
     Dosage: 0.5 DF, DAILY
     Route: 048
  5. DIGOXIN. [Concomitant]
     Active Substance: DIGOXIN
     Indication: HEART RATE NORMAL
     Dosage: UNK
     Route: 065
     Dates: start: 200901
  6. TYLENOL [Concomitant]
     Active Substance: ACETAMINOPHEN
     Indication: PAIN
     Dosage: UNK
     Route: 065
     Dates: start: 2012
  7. METOPROLOL [Suspect]
     Active Substance: METOPROLOL
     Indication: CARDIAC DISORDER
     Dosage: 25 MG, DAILY
     Route: 048
     Dates: start: 200901
  8. ALEVE [Concomitant]
     Active Substance: NAPROXEN SODIUM
     Indication: PAIN
     Dosage: UNK
     Route: 065
     Dates: start: 2012
  9. CRESTOR [Suspect]
     Active Substance: ROSUVASTATIN CALCIUM
     Indication: ANTICOAGULANT THERAPY
     Dosage: 40 MG, DAILY
     Route: 048
  10. OMEPRAZOLE. [Suspect]
     Active Substance: OMEPRAZOLE
     Indication: ERUCTATION
     Dosage: UNK UNK, DAILY
     Route: 048
     Dates: start: 2012
  11. CARAFATE [Concomitant]
     Active Substance: SUCRALFATE
     Indication: PRODUCT USED FOR UNKNOWN INDICATION
     Dosage: UNK
     Route: 065
     Dates: start: 20131121
  12. NEXIUM [Suspect]
     Active Substance: ESOMEPRAZOLE MAGNESIUM
     Indication: GASTROOESOPHAGEAL REFLUX DISEASE
     Dosage: UNK
     Route: 048
     Dates: start: 2003, end: 2004
  13. OMEPRAZOLE. [Suspect]
     Active Substance: OMEPRAZOLE
     Indication: FLATULENCE
     Dosage: OTC,20 MG, DAILY
     Route: 048
  14. OMEPRAZOLE. [Suspect]
     Active Substance: OMEPRAZOLE
     Indication: HERNIA
     Dosage: OTC,20MG,DAILY
     Route: 048
     Dates: start: 2012
  15. CRESTOR [Suspect]
     Active Substance: ROSUVASTATIN CALCIUM
     Indication: BLOOD CHOLESTEROL INCREASED
     Dosage: 40 MG, AT BED TIME
     Route: 048
     Dates: end: 201310
  16. XANAX [Concomitant]
     Active Substance: ALPRAZOLAM
     Indication: ANXIETY
     Dosage: UNK
     Route: 065
     Dates: start: 2009

REACTIONS (31)
  - Urinary tract infection [Unknown]
  - Osteoarthritis [Unknown]
  - Adverse event [Unknown]
  - Cataract [Unknown]
  - Stress [Unknown]
  - Body height decreased [Unknown]
  - Dyspnoea [Unknown]
  - Panic attack [Unknown]
  - Joint swelling [Unknown]
  - Drug effect increased [Recovered/Resolved]
  - Depressed mood [Unknown]
  - Fatigue [Unknown]
  - Hearing impaired [Unknown]
  - Cellulitis [Unknown]
  - Nervous system disorder [Unknown]
  - Flatulence [Unknown]
  - Palpitations [Unknown]
  - Drug ineffective [Unknown]
  - Eructation [Unknown]
  - Hiatus hernia [Unknown]
  - Blood cholesterol increased [Unknown]
  - Intentional product misuse [Unknown]
  - Neuralgia [Unknown]
  - Deafness [Not Recovered/Not Resolved]
  - Arthralgia [Unknown]
  - Drug dose omission [Unknown]
  - Ulcer haemorrhage [Unknown]
  - Coronary artery occlusion [Unknown]
  - Weight decreased [Unknown]
  - Pain [Unknown]
  - Memory impairment [Unknown]

NARRATIVE: CASE EVENT DATE: 2003
